FAERS Safety Report 11308043 (Version 1)
Quarter: 2015Q3

REPORT INFORMATION
  Report Type: Report from Study
  Country: US (occurrence: US)
  Receive Date: 20150724
  Receipt Date: 20150724
  Transmission Date: 20151125
  Serious: Yes (Hospitalization)
  Sender: FDA-Public Use
  Company Number: US-AMGEN-USASL2015073291

PATIENT
  Age: 51 Year
  Sex: Male

DRUGS (2)
  1. FOSRENOL [Concomitant]
     Active Substance: LANTHANUM CARBONATE
     Dosage: UNK
  2. SENSIPAR [Suspect]
     Active Substance: CINACALCET HYDROCHLORIDE
     Indication: HYPERPARATHYROIDISM SECONDARY
     Dosage: 30 MG, UNK
     Route: 048

REACTIONS (2)
  - Hospitalisation [Unknown]
  - Gastrointestinal disorder [Unknown]
